FAERS Safety Report 16895858 (Version 1)
Quarter: 2019Q4

REPORT INFORMATION
  Report Type: Spontaneous
  Country: GB (occurrence: GB)
  Receive Date: 20191008
  Receipt Date: 20191008
  Transmission Date: 20200122
  Serious: Yes (Other)
  Sender: FDA-Public Use
  Company Number: GB-MYLANLABS-2019M1093106

PATIENT
  Age: 18 Year
  Sex: Female
  Weight: 50 kg

DRUGS (8)
  1. LEVONORGESTREL. [Concomitant]
     Active Substance: LEVONORGESTREL
     Dosage: UNK
  2. SERETIDE [Concomitant]
     Active Substance: FLUTICASONE PROPIONATE\SALMETEROL XINAFOATE
     Dosage: UNK
  3. RALTEGRAVIR. [Suspect]
     Active Substance: RALTEGRAVIR
     Indication: PROPHYLAXIS AGAINST HIV INFECTION
     Dosage: 400 MILLIGRAM
     Route: 048
     Dates: start: 20190330, end: 20190408
  4. TENOFOVIR [Suspect]
     Active Substance: TENOFOVIR
     Indication: PROPHYLAXIS AGAINST HIV INFECTION
     Dosage: 245 MILLIGRAM
     Route: 048
     Dates: start: 20190330, end: 20190408
  5. PARACETS [Concomitant]
     Dosage: UNK
  6. IBUPROFEN. [Concomitant]
     Active Substance: IBUPROFEN
     Dosage: UNK
  7. EMTRICITABINE [Suspect]
     Active Substance: EMTRICITABINE
     Indication: PROPHYLAXIS AGAINST HIV INFECTION
     Dosage: 200 MILLIGRAM
     Route: 048
     Dates: start: 20190330, end: 20190408
  8. FLUOXETINE [Concomitant]
     Active Substance: FLUOXETINE HYDROCHLORIDE
     Dosage: UNK

REACTIONS (2)
  - Stevens-Johnson syndrome [Recovered/Resolved with Sequelae]
  - Gingivitis ulcerative [Recovered/Resolved with Sequelae]

NARRATIVE: CASE EVENT DATE: 20190406
